FAERS Safety Report 15337972 (Version 1)
Quarter: 2018Q3

REPORT INFORMATION
  Report Type: Spontaneous
  Country: US (occurrence: US)
  Receive Date: 20180831
  Receipt Date: 20180831
  Transmission Date: 20181010
  Serious: No
  Sender: FDA-Public Use
  Company Number: US-BAYER-2018-162147

PATIENT
  Age: 85 Year
  Sex: Male
  Weight: 100.1 kg

DRUGS (12)
  1. CHLORTHALIDONE. [Concomitant]
     Active Substance: CHLORTHALIDONE
  2. ATORVASTATIN [Concomitant]
     Active Substance: ATORVASTATIN
  3. LISINOPRIL. [Concomitant]
     Active Substance: LISINOPRIL
  4. TAMSULOSIN [Concomitant]
     Active Substance: TAMSULOSIN
  5. CENTRUM SILVER [Concomitant]
     Active Substance: MINERALS\VITAMINS
     Indication: NUTRITIONAL SUPPLEMENTATION
  6. SPIRONOLACTONE. [Concomitant]
     Active Substance: SPIRONOLACTONE
  7. FLUTICASONE PROPIONATE. [Concomitant]
     Active Substance: FLUTICASONE PROPIONATE
  8. CARVEDILOL. [Concomitant]
     Active Substance: CARVEDILOL
  9. GABAPENTIN. [Concomitant]
     Active Substance: GABAPENTIN
  10. XARELTO [Concomitant]
     Active Substance: RIVAROXABAN
  11. GARLIC. [Concomitant]
     Active Substance: GARLIC
  12. MIRALAX [Suspect]
     Active Substance: POLYETHYLENE GLYCOL 3350
     Indication: GASTROINTESTINAL DISORDER
     Dosage: 1 DF, QD
     Route: 048

REACTIONS (1)
  - Incorrect drug administration duration [Unknown]
